FAERS Safety Report 21619346 (Version 2)
Quarter: 2023Q2

REPORT INFORMATION
  Report Type: Spontaneous
  Country: US (occurrence: US)
  Receive Date: 20221120
  Receipt Date: 20230511
  Transmission Date: 20230721
  Serious: Yes (Other)
  Sender: FDA-Public Use
  Company Number: US-drreddys-SPO/USA/22/0156832

PATIENT
  Age: 67 Year
  Sex: Female

DRUGS (1)
  1. CIPROFLOXACIN [Suspect]
     Active Substance: CIPROFLOXACIN
     Indication: Product used for unknown indication
     Dosage: TAKING 6, 500 MG CIPRO PILLS.

REACTIONS (4)
  - Gait disturbance [Unknown]
  - Toxicity to various agents [Unknown]
  - Fatigue [Unknown]
  - Arthralgia [Unknown]
